FAERS Safety Report 21271554 (Version 2)
Quarter: 2022Q3

REPORT INFORMATION
  Report Type: Spontaneous
  Country: ES (occurrence: ES)
  Receive Date: 20220830
  Receipt Date: 20220907
  Transmission Date: 20221027
  Serious: Yes (Life-Threatening, Hospitalization, Other)
  Sender: FDA-Public Use
  Company Number: ES-BAXTER-2022BAX018007

PATIENT
  Age: 77 Year
  Sex: Male

DRUGS (23)
  1. DEXMEDETOMIDINE [Suspect]
     Active Substance: DEXMEDETOMIDINE
     Indication: Confusional state
     Dosage: UNK
     Route: 065
  2. CLONIDINE [Suspect]
     Active Substance: CLONIDINE
     Indication: Confusional state
     Dosage: UNK
     Route: 065
  3. QUETIAPINE [Suspect]
     Active Substance: QUETIAPINE
     Indication: Confusional state
     Dosage: UNK
     Route: 065
  4. CEFTAZIDIME [Suspect]
     Active Substance: CEFTAZIDIME
     Indication: Device related infection
     Dosage: UNK
     Route: 065
  5. MORPHINE [Suspect]
     Active Substance: MORPHINE
     Indication: Post laminectomy syndrome
     Dosage: 4.9 MG, QD, PUMP
     Route: 037
  6. MORPHINE [Suspect]
     Active Substance: MORPHINE
     Indication: Analgesic therapy
     Dosage: 150 MG (50 MG, T.I.D.)
     Route: 048
  7. MORPHINE [Suspect]
     Active Substance: MORPHINE
     Dosage: 50 PERCENT OF IM WAS REPLACED WITH 25 PERCENT OF EQUIVALENT DOSE IN CONTINOUS IV INFUSION BY PCA PUM
     Route: 042
  8. MORPHINE [Suspect]
     Active Substance: MORPHINE
     Dosage: 7997 MG QD (7.997 MILLIGRAM PER DAY THROUGH INTRATHECAL MORPHINE (MI) PUMP CARRIER)
     Route: 037
  9. MORPHINE [Suspect]
     Active Substance: MORPHINE
     Dosage: 25% OF THE EQUIVALENT DOSE OF INTRATHECAL MORPHINE
     Route: 042
  10. OLANZAPINE [Suspect]
     Active Substance: OLANZAPINE
     Indication: Confusional state
     Dosage: UNK
     Route: 065
  11. CLOXACILLIN [Suspect]
     Active Substance: CLOXACILLIN
     Indication: Device related infection
     Dosage: UNK
     Route: 065
  12. HALOPERIDOL [Suspect]
     Active Substance: HALOPERIDOL
     Indication: Confusional state
     Dosage: UNK
     Route: 065
  13. MORPHINE [Concomitant]
     Active Substance: MORPHINE
     Indication: Post laminectomy syndrome
     Dosage: DOSE DECREASED
     Route: 065
  14. MORPHINE [Concomitant]
     Active Substance: MORPHINE
     Indication: Pain
     Dosage: ORAL CONTROLLED-RELEASE MORPHINE (MST) WAS STARTED PROGRESSIVELY UNTIL 50% OF THE EQUIVALENT DOSE OF
     Route: 065
  15. MORPHINE [Concomitant]
     Active Substance: MORPHINE
     Dosage: DESCENDING ORAL MORPHINE REGIMEN
     Route: 065
  16. MORPHINE [Concomitant]
     Active Substance: MORPHINE
     Dosage: MST STARTED IN ASCENDING DOSES, DOSE INCREASED
     Route: 048
  17. MORPHINE [Concomitant]
     Active Substance: MORPHINE
     Dosage: 8 MG, 7.997 MILLIGRAM PER DAY THROUGH INTRATHECAL MORPHINE (MI) PUMP CARRIER
     Route: 037
  18. MORPHINE [Concomitant]
     Active Substance: MORPHINE
     Dosage: 120 MG EVERY 8 HOURS
     Route: 048
  19. MORPHINE [Concomitant]
     Active Substance: MORPHINE
     Dosage: 150 MG, T.I.D.
     Route: 048
  20. MORPHINE [Concomitant]
     Active Substance: MORPHINE
     Dosage: INCREASED TO 50 PERCENT OF THE DOSE OF MI, PATIENT CONTROLLED ANALGESIA PUMP, INITIALLY, DOSE OF IV
     Route: 042
  21. MORPHINE [Concomitant]
     Active Substance: MORPHINE
     Dosage: 200 MG EVERY 8 HOURS
     Route: 048
  22. CLOXACILLIN [Concomitant]
     Active Substance: CLOXACILLIN
     Indication: Postoperative wound infection
     Dosage: UNK
     Route: 065
  23. CEFTAZIDIME [Concomitant]
     Active Substance: CEFTAZIDIME
     Indication: Postoperative wound infection
     Dosage: UNK
     Route: 065

REACTIONS (11)
  - Somnolence [Recovering/Resolving]
  - Drug withdrawal syndrome [Recovering/Resolving]
  - Haemodynamic instability [Recovered/Resolved]
  - Drug ineffective [Recovered/Resolved]
  - Toxicity to various agents [Recovering/Resolving]
  - Condition aggravated [Recovered/Resolved]
  - Respiratory failure [Recovered/Resolved]
  - Delirium [Recovering/Resolving]
  - Confusional state [Recovering/Resolving]
  - Hypersomnia [Recovered/Resolved]
  - Product use in unapproved indication [Unknown]
